FAERS Safety Report 10241375 (Version 1)
Quarter: 2014Q2

REPORT INFORMATION
  Report Type: Spontaneous
  Country: NO (occurrence: None)
  Receive Date: 20140613
  Receipt Date: 20140613
  Transmission Date: 20141212
  Serious: Yes (Other)
  Sender: FDA-Public Use
  Company Number: FK201402288

PATIENT
  Age: 31 Year
  Sex: Female

DRUGS (11)
  1. CYTARABINE [Suspect]
     Indication: PRECURSOR T-LYMPHOBLASTIC LYMPHOMA/LEUKAEMIA
     Route: 037
  2. METHOTREXATE [Suspect]
     Indication: PRECURSOR T-LYMPHOBLASTIC LYMPHOMA/LEUKAEMIA
     Route: 037
  3. PREDNISONE [Suspect]
     Indication: PRECURSOR T-LYMPHOBLASTIC LYMPHOMA/LEUKAEMIA
     Route: 037
  4. DOXORUBICIN [Suspect]
     Indication: PRECURSOR T-LYMPHOBLASTIC LYMPHOMA/LEUKAEMIA
     Dosage: NOT OTHERWISE SPECIFIED
     Route: 042
  5. CYCLOPHOSPHAMIDE [Suspect]
     Indication: PRECURSOR T-LYMPHOBLASTIC LYMPHOMA/LEUKAEMIA
     Dosage: NOT OTHERWISE SPECIFIED
     Route: 042
  6. L-ASPARAGINASE [Suspect]
     Indication: PRECURSOR T-LYMPHOBLASTIC LYMPHOMA/LEUKAEMIA
     Dosage: NOT OTHERWISE SPECIFIED
     Route: 042
  7. VINCRISTINE SULFATE [Suspect]
     Indication: PRECURSOR T-LYMPHOBLASTIC LYMPHOMA/LEUKAEMIA
     Dosage: NOT OTHERWISE SPECIFIED
     Route: 042
  8. MERCAPTOPURINE [Suspect]
     Indication: PRECURSOR T-LYMPHOBLASTIC LYMPHOMA/LEUKAEMIA
     Route: 048
  9. GRANULOCYTE COLONY-STIMULATING FACTOR NOS [Suspect]
     Indication: PERIPHERAL BLOOD STEM CELL APHERESIS
  10. THIOGUANINE [Suspect]
     Indication: PRECURSOR T-LYMPHOBLASTIC LYMPHOMA/LEUKAEMIA
     Route: 042
  11. DAUNORUBICIN [Suspect]
     Indication: PRECURSOR T-LYMPHOBLASTIC LYMPHOMA/LEUKAEMIA
     Dosage: NOT OTHERWISE SPECIFIED
     Route: 042

REACTIONS (2)
  - Febrile neutropenia [None]
  - Haematotoxicity [None]
